FAERS Safety Report 7413187-3 (Version None)
Quarter: 2011Q2

REPORT INFORMATION
  Report Type: 
  Country: None (occurrence: None)
  Receive Date: 20110413
  Receipt Date: 20110411
  Transmission Date: 20111010
  Serious: Yes (Other)
  Sender: FDA-Public Use
  Company Number: CN-PFIZER INC-2011078710

PATIENT
  Age: 48 Year
  Sex: Male

DRUGS (3)
  1. ASPIRIN [Concomitant]
  2. NORVASC [Suspect]
     Indication: HYPERTENSION
     Dosage: 1 TABLET PER DAY
     Route: 048
     Dates: start: 20110301
  3. NORVASC [Suspect]
     Dosage: 2 TABLETS PER DAY
     Route: 048

REACTIONS (4)
  - CHEST DISCOMFORT [None]
  - BACK PAIN [None]
  - DYSPNOEA [None]
  - HAEMATOCHEZIA [None]
